FAERS Safety Report 9514772 (Version 1)
Quarter: 2013Q3

REPORT INFORMATION
  Report Type: Spontaneous
  Country: US (occurrence: US)
  Receive Date: 20130911
  Receipt Date: 20130911
  Transmission Date: 20140515
  Serious: No
  Sender: FDA-Public Use
  Company Number: US-BAYER-2013-108565

PATIENT
  Sex: Female
  Weight: 61.22 kg

DRUGS (6)
  1. BETASERON [Suspect]
     Dosage: 0.25 MG, QOD
     Route: 058
  2. B12 [Concomitant]
     Dosage: 1 MG, UNK
  3. LEXAPRO [Concomitant]
     Dosage: 5 MG, UNK
  4. ADVIL [Concomitant]
     Dosage: 200 MG, UNK
  5. TYLENOL [PARACETAMOL] [Concomitant]
     Dosage: 650 MG, UNK
  6. VITAMIN D [Concomitant]
     Dosage: 50000 UNT, UNK

REACTIONS (2)
  - Fatigue [Unknown]
  - Drug dose omission [None]
